APPROVED DRUG PRODUCT: VENLAFAXINE BESYLATE
Active Ingredient: VENLAFAXINE BESYLATE
Strength: EQ 112.5MG BASE
Dosage Form/Route: TABLET, EXTENDED RELEASE;ORAL
Application: N215429 | Product #001
Applicant: ALMATICA PHARMA LLC
Approved: Jun 29, 2022 | RLD: Yes | RS: Yes | Type: RX

PATENTS:
Patent 7776358 | Expires: May 16, 2028